FAERS Safety Report 6542409-6 (Version None)
Quarter: 2010Q1

REPORT INFORMATION
  Report Type: 
  Country: None (occurrence: None)
  Receive Date: 20100114
  Receipt Date: 20100114
  Transmission Date: 20100710
  Serious: Yes (Hospitalization)
  Sender: FDA-Public Use
  Company Number: None

PATIENT
  Age: 4 Year
  Sex: Male
  Weight: 18.2 kg

DRUGS (2)
  1. HUMATE-P [Suspect]
     Indication: VON WILLEBRAND'S DISEASE
     Dosage: 569 RISTOCETIN CO-FACTOR UNITS 8/4, 8/7, 8/13/09 IV BOLUS
     Route: 040
     Dates: start: 20090804, end: 20090813
  2. HUMATE-P [Suspect]
     Indication: VON WILLEBRAND'S DISEASE
     Dosage: 1079 RISTOCETIN CO-FACTOR UNIT 8/4, 8/7, 8/13 IV BOLUS
     Route: 040
     Dates: start: 20090804, end: 20090813

REACTIONS (6)
  - EPISTAXIS [None]
  - HAEMOGLOBIN DECREASED [None]
  - SERUM SICKNESS [None]
  - TYPE III IMMUNE COMPLEX MEDIATED REACTION [None]
  - URTICARIA [None]
  - VIRAL INFECTION [None]
